FAERS Safety Report 12822508 (Version 1)
Quarter: 2016Q4

REPORT INFORMATION
  Report Type: Spontaneous
  Country: US (occurrence: US)
  Receive Date: 20161006
  Receipt Date: 20161006
  Transmission Date: 20170207
  Serious: Yes (Other)
  Sender: FDA-Public Use
  Company Number: US-MEDA-2016090099

PATIENT
  Sex: Female

DRUGS (3)
  1. OXYCODONE [Suspect]
     Active Substance: OXYCODONE
     Indication: PAIN
  2. SOMA [Suspect]
     Active Substance: CARISOPRODOL
     Indication: PAIN
  3. OXYCODONE [Suspect]
     Active Substance: OXYCODONE
     Indication: PAIN

REACTIONS (1)
  - Drug dependence [Unknown]
